FAERS Safety Report 9379839 (Version 2)
Quarter: 2013Q3

REPORT INFORMATION
  Report Type: Spontaneous
  Country: FR (occurrence: None)
  Receive Date: 20130627
  Receipt Date: 20130904
  Transmission Date: 20140515
  Serious: Yes (Hospitalization)
  Sender: FDA-Public Use
  Company Number: SYM-2013-05057

PATIENT
  Age: 80 Year
  Sex: Male

DRUGS (6)
  1. MESTINON [Suspect]
     Indication: PRODUCT USED FOR UNKNOWN INDICATION
     Route: 048
  2. CORTANCYL (PREDNISONE) [Suspect]
     Indication: PRODUCT USED FOR UNKNOWN INDICATION
  3. IMUREL [Suspect]
     Indication: PRODUCT USED FOR UNKNOWN INDICATION
     Route: 048
  4. DETENSIEL [Suspect]
     Indication: HYPERTENSION
     Dates: end: 20130211
  5. MICARDIS (TELMISARTAN) [Suspect]
     Indication: HYPERTENSION
     Dates: end: 20130211
  6. PRAVADUAL [Suspect]
     Indication: PRODUCT USED FOR UNKNOWN INDICATION

REACTIONS (5)
  - Orthostatic hypotension [None]
  - Confusional state [None]
  - Incoherent [None]
  - Abnormal behaviour [None]
  - Blood pressure fluctuation [None]
